FAERS Safety Report 11692471 (Version 1)
Quarter: 2015Q4

REPORT INFORMATION
  Report Type: Report from Study
  Country: CA (occurrence: CA)
  Receive Date: 20151103
  Receipt Date: 20151103
  Transmission Date: 20160304
  Serious: Yes (Hospitalization)
  Sender: FDA-Public Use
  Company Number: CA-ROCHE-1498963

PATIENT
  Age: 51 Year
  Sex: Male
  Weight: 90.1 kg

DRUGS (4)
  1. FLUDARABINE [Suspect]
     Active Substance: FLUDARABINE PHOSPHATE
     Indication: CHRONIC LYMPHOCYTIC LEUKAEMIA
     Dosage: 25 MG/M2 INTRAVENOUS OVER 30 MIN OR 40 MG/M2 PER ORAL ON DAY1-5?LAST DOSE GIVEN ON 05/JUL/2011
     Route: 048
  2. RITUXIMAB [Suspect]
     Active Substance: RITUXIMAB
     Dosage: 50-400 MG/HR BASED ON INFUSION REACTIONS ON DAY3, CYCLE1?DAY3, CYCLE1
     Route: 042
  3. RITUXIMAB [Suspect]
     Active Substance: RITUXIMAB
     Indication: CHRONIC LYMPHOCYTIC LEUKAEMIA
     Dosage: OVER 4 HOURS ON DAY1 CYCLE1 ?LAST DOSE GIVEN ON 05/JUL/2011 (1578 MG)
     Route: 042
     Dates: start: 20110107
  4. RITUXIMAB [Suspect]
     Active Substance: RITUXIMAB
     Dosage: AT 100 MG/HR FOR FIRST 15 MIN AND INCREASED OVER NEXT 45-60 MIN ON DAY5 CYCLE1 AND ON DAY1 CYCLE2+
     Route: 042

REACTIONS (1)
  - Lower gastrointestinal haemorrhage [Recovered/Resolved with Sequelae]

NARRATIVE: CASE EVENT DATE: 20110715
